FAERS Safety Report 18146186 (Version 5)
Quarter: 2024Q2

REPORT INFORMATION
  Report Type: Spontaneous
  Country: CA (occurrence: CA)
  Receive Date: 20200813
  Receipt Date: 20240426
  Transmission Date: 20240716
  Serious: Yes (Life-Threatening, Hospitalization, Other)
  Sender: FDA-Public Use
  Company Number: CA-ANIPHARMA-2020-CA-001515

PATIENT
  Age: 65 Year
  Sex: Female

DRUGS (59)
  1. CANDESARTAN [Suspect]
     Active Substance: CANDESARTAN
     Indication: Product used for unknown indication
     Route: 048
  2. METHOTREXATE [Suspect]
     Active Substance: METHOTREXATE
     Route: 065
  3. COAL TAR [Concomitant]
     Active Substance: COAL TAR
     Route: 065
  4. CYMBALTA [Concomitant]
     Active Substance: DULOXETINE HYDROCHLORIDE
     Route: 065
  5. DOVONEX [Concomitant]
     Active Substance: CALCIPOTRIENE
     Route: 065
  6. JANUVIA [Suspect]
     Active Substance: SITAGLIPTIN PHOSPHATE
     Dosage: 100 MG DAILY
     Route: 048
  7. PANTOPRAZOLE [Concomitant]
     Active Substance: PANTOPRAZOLE
     Route: 065
  8. ROSUVASTATIN [Concomitant]
     Active Substance: ROSUVASTATIN
     Route: 065
  9. STELARA [Concomitant]
     Active Substance: USTEKINUMAB
     Route: 058
  10. SYNTHROID [Concomitant]
     Active Substance: LEVOTHYROXINE SODIUM
     Route: 065
  11. ZOLPIDEM [Concomitant]
     Active Substance: ZOLPIDEM TARTRATE
     Route: 065
  12. BISOPROLOL FUMARATE [Suspect]
     Active Substance: BISOPROLOL FUMARATE
     Route: 065
  13. ALISKIREN [Suspect]
     Active Substance: ALISKIREN
     Dosage: 300 MG DAILY
     Route: 048
  14. ALISKIREN HEMIFUMARATE [Suspect]
     Active Substance: ALISKIREN HEMIFUMARATE
     Dosage: 300 MG DAILY / 150 MG DAILY / UNK
     Route: 065
  15. AMLODIPINE [Suspect]
     Active Substance: AMLODIPINE BESYLATE
     Dosage: 5 MG DAILY
     Route: 048
  16. AMLODIPINE BESYLATE [Suspect]
     Active Substance: AMLODIPINE BESYLATE
     Dosage: 1 DF UNK
     Route: 065
  17. AVAPRO [Concomitant]
     Active Substance: IRBESARTAN
     Dosage: 1 DF UNK
     Route: 065
  18. ESOMEPRAZOLE [Concomitant]
     Active Substance: ESOMEPRAZOLE
     Dosage: 40 MG UNK
     Route: 065
  19. IRBESARTAN [Suspect]
     Active Substance: IRBESARTAN
     Dosage: 300 MG DAILY / 1 DF UNK
     Route: 048
  20. ESOMEPRAZOLE [Suspect]
     Active Substance: ESOMEPRAZOLE
  21. ACITRETIN [Concomitant]
     Active Substance: ACITRETIN
     Route: 065
  22. ONDANSETRON [Suspect]
     Active Substance: ONDANSETRON
  23. ASPIRIN [Suspect]
     Active Substance: ASPIRIN
     Dosage: 1 DF DAILY
  24. MORPHINE [Suspect]
     Active Substance: MORPHINE
  25. RITUXIMAB [Suspect]
     Active Substance: RITUXIMAB
  26. ACETAMINOPHEN [Suspect]
     Active Substance: ACETAMINOPHEN
     Dosage: 650 MG DAILY
  27. ALTACE [Suspect]
     Active Substance: RAMIPRIL
  28. DIPHENHYDRAMINE HYDROCHLORIDE [Suspect]
     Active Substance: DIPHENHYDRAMINE HYDROCHLORIDE
     Dosage: 50 MG DAILY
  29. GLICLAZIDE [Suspect]
     Active Substance: GLICLAZIDE
  30. METHYLPREDNISOLONE SODIUM SUCCINATE [Suspect]
     Active Substance: METHYLPREDNISOLONE SODIUM SUCCINATE
     Dosage: 100 MG DAILY
  31. PREDNISONE [Suspect]
     Active Substance: PREDNISONE
  32. AMEVIVE [Concomitant]
     Active Substance: ALEFACEPT
     Route: 030
  33. PROCHLORPERAZINE [Suspect]
     Active Substance: PROCHLORPERAZINE
  34. SYNTHROID [Suspect]
     Active Substance: LEVOTHYROXINE SODIUM
  35. ZOLPIDEM [Suspect]
     Active Substance: ZOLPIDEM TARTRATE
  36. JANUVIA [Suspect]
     Active Substance: SITAGLIPTIN PHOSPHATE
     Dosage: 100 MG DAILY
     Route: 048
  37. LIPITOR [Suspect]
     Active Substance: ATORVASTATIN CALCIUM
     Dosage: 20 MG DAILY
  38. IRBESARTAN [Suspect]
     Active Substance: IRBESARTAN
     Dosage: 300 MG DAILY
     Route: 048
  39. IRBESARTAN [Suspect]
     Active Substance: IRBESARTAN
     Dosage: 300 MG DAILY / UNK / 1 DF DAILY / 1 DF DAILY / 300 MG DAILY
  40. GRAVOL [Suspect]
     Active Substance: DIMENHYDRINATE
     Dosage: 50 MG DAILY / 100 MG DAILY
  41. LEVOTHYROXINE SODIUM [Suspect]
     Active Substance: LEVOTHYROXINE SODIUM
  42. LISINOPRIL [Suspect]
     Active Substance: LISINOPRIL
  43. ASPIRIN [Concomitant]
     Active Substance: ASPIRIN
     Dosage: 81 MG UNK
     Route: 065
  44. AMLODIPINE BESYLATE [Concomitant]
     Active Substance: AMLODIPINE BESYLATE
     Dosage: 1 DF UNK
  45. CYANOCOBALAMIN [Concomitant]
     Active Substance: CYANOCOBALAMIN
  46. MEDROL [Concomitant]
     Active Substance: METHYLPREDNISOLONE
  47. DOMPERIDONE [Concomitant]
     Active Substance: DOMPERIDONE
  48. LEVOTHYROXINE [Concomitant]
     Active Substance: LEVOTHYROXINE\LEVOTHYROXINE SODIUM
  49. PANTOPRAZOLE MAGNESIUM [Concomitant]
     Active Substance: PANTOPRAZOLE MAGNESIUM
  50. TELMISARTAN [Concomitant]
     Active Substance: TELMISARTAN
  51. TYLENOL [Concomitant]
     Active Substance: ACETAMINOPHEN
  52. LEVEMIR [Concomitant]
     Active Substance: INSULIN DETEMIR
  53. LANTUS [Concomitant]
     Active Substance: INSULIN GLARGINE
  54. CALCIUM CARBONATE [Suspect]
     Active Substance: CALCIUM CARBONATE
     Route: 065
  55. HUMALOG [Concomitant]
     Active Substance: INSULIN LISPRO
  56. HYDROCHLOROTHIAZIDE [Concomitant]
     Active Substance: HYDROCHLOROTHIAZIDE
  57. COSENTYX [Suspect]
     Active Substance: SECUKINUMAB
     Dosage: 300 MG WEEK / UNK / 300 MG UNK / 300 MG MONTH / UNK / 300 MG UNK / 300 MG UNK / UNK / 42.857 MG UNK
     Route: 058
  58. ERGOCALCIFEROL [Suspect]
     Active Substance: ERGOCALCIFEROL
     Route: 065
  59. METFORMIN [Suspect]
     Active Substance: METFORMIN HYDROCHLORIDE
     Dosage: UNK / 2550 MG DAILY / 2550 MG DAILY
     Route: 048

REACTIONS (53)
  - Pain [Not Recovered/Not Resolved]
  - Pneumonia [Not Recovered/Not Resolved]
  - Psoriasis [Not Recovered/Not Resolved]
  - Pyrexia [Not Recovered/Not Resolved]
  - Respiratory tract congestion [Not Recovered/Not Resolved]
  - Rhinorrhoea [Not Recovered/Not Resolved]
  - Sinus congestion [Not Recovered/Not Resolved]
  - Sinus disorder [Not Recovered/Not Resolved]
  - Skin exfoliation [Not Recovered/Not Resolved]
  - Skin haemorrhage [Not Recovered/Not Resolved]
  - Cystitis [Not Recovered/Not Resolved]
  - Sneezing [Not Recovered/Not Resolved]
  - Vomiting [Not Recovered/Not Resolved]
  - Cough [Not Recovered/Not Resolved]
  - Adjustment disorder [Not Recovered/Not Resolved]
  - Affect lability [Not Recovered/Not Resolved]
  - Anxiety [Not Recovered/Not Resolved]
  - Aphasia [Not Recovered/Not Resolved]
  - Asthenia [Not Recovered/Not Resolved]
  - Carotid artery thrombosis [Not Recovered/Not Resolved]
  - Cerebrovascular accident [Not Recovered/Not Resolved]
  - Fatigue [Not Recovered/Not Resolved]
  - Confusional state [Not Recovered/Not Resolved]
  - Coordination abnormal [Not Recovered/Not Resolved]
  - Dysarthria [Not Recovered/Not Resolved]
  - Dysphagia [Not Recovered/Not Resolved]
  - Eating disorder [Not Recovered/Not Resolved]
  - Fall [Not Recovered/Not Resolved]
  - Hemiparesis [Not Recovered/Not Resolved]
  - Hemiplegia [Not Recovered/Not Resolved]
  - Motor dysfunction [Not Recovered/Not Resolved]
  - Muscle spasticity [Not Recovered/Not Resolved]
  - Headache [Not Recovered/Not Resolved]
  - Muscular weakness [Not Recovered/Not Resolved]
  - Neurologic neglect syndrome [Not Recovered/Not Resolved]
  - Personality disorder [Not Recovered/Not Resolved]
  - Sensory loss [Not Recovered/Not Resolved]
  - Angina pectoris [Not Recovered/Not Resolved]
  - Arterial occlusive disease [Not Recovered/Not Resolved]
  - Arthritis [Not Recovered/Not Resolved]
  - Blood pressure increased [Not Recovered/Not Resolved]
  - Cataract [Not Recovered/Not Resolved]
  - Chest discomfort [Not Recovered/Not Resolved]
  - Influenza [Not Recovered/Not Resolved]
  - Gangrene [Not Recovered/Not Resolved]
  - Gastrointestinal disorder [Not Recovered/Not Resolved]
  - Palpitations [Not Recovered/Not Resolved]
  - Rheumatoid arthritis [Not Recovered/Not Resolved]
  - Sinusitis [Not Recovered/Not Resolved]
  - Influenza like illness [Not Recovered/Not Resolved]
  - Malaise [Not Recovered/Not Resolved]
  - Nasopharyngitis [Not Recovered/Not Resolved]
  - Nausea [Not Recovered/Not Resolved]
